FAERS Safety Report 5412705-4 (Version None)
Quarter: 2007Q3

REPORT INFORMATION
  Report Type: 
  Country: None (occurrence: None)
  Receive Date: 20070809
  Receipt Date: 20070731
  Transmission Date: 20080115
  Serious: Yes (Life-Threatening, Hospitalization)
  Sender: FDA-Public Use
  Company Number: 2007-162127-NL

PATIENT
  Age: 32 Year
  Sex: Female

DRUGS (1)
  1. ETONOGESTREL [Suspect]
     Indication: CONTRACEPTION
     Dosage: DF SUBCUTANEOUS
     Route: 058
     Dates: start: 20030402, end: 20030503

REACTIONS (2)
  - ANAEMIA [None]
  - VAGINAL HAEMORRHAGE [None]
